FAERS Safety Report 5838933-1 (Version None)
Quarter: 2008Q3

REPORT INFORMATION
  Report Type: 
  Country: None (occurrence: None)
  Receive Date: 20080808
  Receipt Date: 20080805
  Transmission Date: 20090109
  Serious: Yes (Other)
  Sender: FDA-Public Use
  Company Number: PHEH2008US04014

PATIENT
  Sex: Female
  Weight: 88.888 kg

DRUGS (5)
  1. TASIGNA [Suspect]
     Indication: CHRONIC MYELOID LEUKAEMIA
     Dosage: 400 MG, BID
     Route: 048
     Dates: start: 20080416, end: 20080502
  2. TASIGNA [Suspect]
     Dosage: 400 MG, QD
     Route: 048
     Dates: start: 20080509, end: 20080609
  3. SPRYCEL [Concomitant]
     Dosage: 70 MG, UNK
     Dates: start: 20061201, end: 20080301
  4. MECLIZINE [Concomitant]
     Dosage: 25 MG, TID
     Route: 048
     Dates: start: 20080401
  5. DIOVAN HCT [Concomitant]
     Dosage: 160-12.5 MG DAILY
     Dates: start: 20080120

REACTIONS (6)
  - ANOREXIA [None]
  - BURNING SENSATION [None]
  - ELECTROCARDIOGRAM QT PROLONGED [None]
  - MUSCLE SPASMS [None]
  - PAIN IN EXTREMITY [None]
  - WEIGHT INCREASED [None]
